FAERS Safety Report 5529857-8 (Version None)
Quarter: 2007Q4

REPORT INFORMATION
  Report Type: 
  Country: None (occurrence: None)
  Receive Date: 20071129
  Receipt Date: 20070808
  Transmission Date: 20080405
  Serious: No
  Sender: FDA-Public Use
  Company Number: US-ABBOTT-07P-163-0377029-00

PATIENT
  Sex: Female
  Weight: 68.1 kg

DRUGS (8)
  1. MERIDIA [Suspect]
     Indication: WEIGHT CONTROL
     Route: 048
     Dates: start: 20070724, end: 20070727
  2. MERIDIA [Suspect]
     Indication: DECREASED APPETITE
     Route: 048
     Dates: start: 20070727, end: 20070806
  3. EZETIMIBE [Concomitant]
     Indication: BLOOD CHOLESTEROL INCREASED
     Route: 048
  4. OLMESARTAN MEDOXOMIL [Concomitant]
     Indication: HYPERTENSION
     Route: 048
  5. VENLAFAXINE HCL [Concomitant]
     Indication: HOT FLUSH
     Route: 048
  6. SILVER CENTRUM [Concomitant]
     Indication: VITAMIN SUPPLEMENTATION
     Route: 048
  7. CALCIUM-SANDOZ [Concomitant]
     Indication: SUPPLEMENTATION THERAPY
     Route: 048
  8. IBANDRONATE SODIUM [Concomitant]
     Indication: OSTEOPOROSIS
     Route: 048

REACTIONS (2)
  - DRUG INEFFECTIVE [None]
  - INSOMNIA [None]
